FAERS Safety Report 9458656 (Version 1)
Quarter: 2013Q3

REPORT INFORMATION
  Report Type: Spontaneous
  Country: PT (occurrence: PT)
  Receive Date: 20130814
  Receipt Date: 20130814
  Transmission Date: 20140515
  Serious: Yes (Other)
  Sender: FDA-Public Use
  Company Number: PT-UCBSA-094648

PATIENT
  Age: 24 Year
  Sex: Female

DRUGS (2)
  1. KEPPRA [Suspect]
     Indication: EPILEPSY
     Dates: start: 201209
  2. CARBAMAZEPINE [Concomitant]
     Indication: EPILEPSY
     Dosage: SINCE PATIENT^S 9 YEARS OLD

REACTIONS (1)
  - Systemic lupus erythematosus rash [Unknown]
